FAERS Safety Report 7103056-0 (Version None)
Quarter: 2010Q4

REPORT INFORMATION
  Report Type: 
  Country: None (occurrence: None)
  Receive Date: 20101115
  Receipt Date: 20101103
  Transmission Date: 20110411
  Serious: Yes (Hospitalization)
  Sender: FDA-Public Use
  Company Number: US-JNJFOC-20101102228

PATIENT
  Sex: Female
  Weight: 68.1 kg

DRUGS (24)
  1. REMICADE [Suspect]
     Indication: CROHN'S DISEASE
     Route: 042
  2. MESALAMINE [Concomitant]
  3. METHOTREXATE [Concomitant]
  4. PROBIOTICS [Concomitant]
  5. FLORASTOR [Concomitant]
  6. ALBUTEROL SULPHATE [Concomitant]
  7. HIBICLENS [Concomitant]
  8. CREON [Concomitant]
  9. NU-IRON [Concomitant]
  10. CLOTRIMAZOLE [Concomitant]
  11. FOLIC ACID [Concomitant]
  12. VITAMIN D [Concomitant]
  13. LACTAID [Concomitant]
  14. AMITRIPTYLINE HCL [Concomitant]
  15. LUXIQ [Concomitant]
  16. FLOVENT [Concomitant]
  17. ALBUTEROL [Concomitant]
  18. MULTIPLE VITAMIN [Concomitant]
  19. BACTROBAN [Concomitant]
  20. LOVAZA [Concomitant]
  21. VIOKASE 16 [Concomitant]
  22. SINGULAIR [Concomitant]
  23. OMEPRAZOLE [Concomitant]
  24. PENTASA [Concomitant]

REACTIONS (1)
  - ABDOMINAL PAIN [None]
